FAERS Safety Report 5991100-3 (Version None)
Quarter: 2008Q4

REPORT INFORMATION
  Report Type: 
  Country: None (occurrence: None)
  Receive Date: 20081209
  Receipt Date: 20081202
  Transmission Date: 20090506
  Serious: Yes (Other)
  Sender: FDA-Public Use
  Company Number: 037524

PATIENT

DRUGS (1)
  1. WARFARIN SODIUM [Suspect]

REACTIONS (2)
  - ABDOMINAL DISCOMFORT [None]
  - DEEP VEIN THROMBOSIS [None]
